FAERS Safety Report 11407821 (Version 2)
Quarter: 2015Q3

REPORT INFORMATION
  Report Type: Report from Study
  Country: AU (occurrence: AU)
  Receive Date: 20150821
  Receipt Date: 20150902
  Transmission Date: 20151125
  Serious: Yes (Hospitalization, Other)
  Sender: FDA-Public Use
  Company Number: AU-GILEAD-2015-0167511

PATIENT
  Age: 55 Year
  Sex: Male

DRUGS (2)
  1. DACLATASVIR. [Suspect]
     Active Substance: DACLATASVIR
     Indication: CHRONIC HEPATITIS C
     Dosage: 60 MG, UNK
     Route: 048
     Dates: start: 20150612, end: 20150810
  2. SOFOSBUVIR [Suspect]
     Active Substance: SOFOSBUVIR
     Indication: CHRONIC HEPATITIS C
     Dosage: 400 MG, UNK
     Route: 048
     Dates: start: 20150612, end: 20150810

REACTIONS (6)
  - Orthopnoea [Unknown]
  - Renal impairment [Unknown]
  - Retching [Unknown]
  - Abdominal distension [Unknown]
  - Nausea [Unknown]
  - Ascites [Unknown]

NARRATIVE: CASE EVENT DATE: 201508
